FAERS Safety Report 8410115-9 (Version None)
Quarter: 2012Q2

REPORT INFORMATION
  Report Type: 
  Country: None (occurrence: None)
  Receive Date: 20120529
  Receipt Date: 20120514
  Transmission Date: 20120825
  Serious: Yes (Death, Hospitalization)
  Sender: FDA-Public Use
  Company Number: UTC-018676

PATIENT
  Age: 52 Year
  Sex: Female
  Weight: 63.6 kg

DRUGS (4)
  1. ADCIRCA [Concomitant]
  2. DIURETICS (DIURETICS) [Concomitant]
  3. REMODULIN [Suspect]
     Indication: PULMONARY HYPERTENSION
     Dosage: 115.2 UG/KG (0.08 UG/KG, 1 IN 1 MIN), INTRAVENOUS
     Route: 042
     Dates: start: 20090721
  4. COUMADIN [Concomitant]

REACTIONS (1)
  - HOSPITALISATION [None]
